FAERS Safety Report 13459801 (Version 2)
Quarter: 2017Q2

REPORT INFORMATION
  Report Type: Spontaneous
  Country: CO (occurrence: CO)
  Receive Date: 20170420
  Receipt Date: 20170510
  Transmission Date: 20170830
  Serious: Yes (Hospitalization)
  Sender: FDA-Public Use
  Company Number: CO-BAXTER-2017BAX016325

PATIENT
  Age: 40 Year
  Sex: Male
  Weight: 52 kg

DRUGS (2)
  1. DIANEAL LOW CALCIUM WITH DEXTROSE [Suspect]
     Active Substance: CALCIUM CHLORIDE\DEXTROSE\MAGNESIUM CHLORIDE\SODIUM CHLORIDE\SODIUM LACTATE
     Indication: CHRONIC KIDNEY DISEASE
     Dosage: 1 BAG
     Route: 033
     Dates: start: 20150408
  2. DIANEAL LOW CALCIUM WITH DEXTROSE [Suspect]
     Active Substance: CALCIUM CHLORIDE\DEXTROSE\MAGNESIUM CHLORIDE\SODIUM CHLORIDE\SODIUM LACTATE
     Indication: PERITONEAL DIALYSIS

REACTIONS (4)
  - Road traffic accident [Recovered/Resolved]
  - Clavicle fracture [Recovered/Resolved]
  - Tibia fracture [Recovered/Resolved]
  - Fibula fracture [Recovered/Resolved]

NARRATIVE: CASE EVENT DATE: 20170317
